FAERS Safety Report 10535627 (Version 1)
Quarter: 2014Q4

REPORT INFORMATION
  Report Type: Spontaneous
  Country: US (occurrence: US)
  Receive Date: 20141022
  Receipt Date: 20141022
  Transmission Date: 20150529
  Serious: No
  Sender: FDA-Public Use
  Company Number: US-009507513-1410USA011051

PATIENT
  Age: 81 Year
  Sex: Female

DRUGS (1)
  1. VYTORIN [Suspect]
     Active Substance: EZETIMIBE\SIMVASTATIN
     Route: 048

REACTIONS (1)
  - Inappropriate schedule of drug administration [Unknown]
